FAERS Safety Report 6389552-2 (Version None)
Quarter: 2009Q4

REPORT INFORMATION
  Report Type: 
  Country: None (occurrence: None)
  Receive Date: 20091006
  Receipt Date: 20090929
  Transmission Date: 20100525
  Serious: Yes (Other)
  Sender: FDA-Public Use
  Company Number: US-AMGEN-KDL367113

PATIENT
  Sex: Female
  Weight: 90.8 kg

DRUGS (9)
  1. PROCRIT [Suspect]
     Indication: ANAEMIA OF MALIGNANT DISEASE
  2. HYDREA [Concomitant]
  3. ZOFRAN [Concomitant]
  4. BENICAR [Concomitant]
  5. FOLIC ACID [Concomitant]
  6. VITAMIN D [Concomitant]
  7. ASPIRIN [Concomitant]
     Route: 048
  8. NORCO [Concomitant]
  9. XANAX [Concomitant]

REACTIONS (1)
  - REFRACTORY ANAEMIA [None]
